FAERS Safety Report 9281343 (Version 1)
Quarter: 2013Q2

REPORT INFORMATION
  Report Type: Spontaneous
  Country: GB (occurrence: None)
  Receive Date: 20130502
  Receipt Date: 20130502
  Transmission Date: 20140414
  Serious: Yes (Other)
  Sender: FDA-Public Use
  Company Number: AXC-2013-000182

PATIENT
  Age: 39 Year
  Sex: Male

DRUGS (3)
  1. NITROGLYCERIN (NITROGLYCERIN) RECTAL OINTMENT [Suspect]
     Dosage: 1-2 CM PER DOSE, BID, TOPICAL
     Dates: start: 20130214, end: 20130301
  2. PARACETAMOL [Suspect]
     Indication: PRODUCT USED FOR UNKNOWN INDICATION
  3. IBUPROFEN [Suspect]

REACTIONS (3)
  - Chorioretinopathy [None]
  - Metamorphopsia [None]
  - Headache [None]
